FAERS Safety Report 9238309 (Version 1)
Quarter: 2013Q2

REPORT INFORMATION
  Report Type: Spontaneous
  Country: US (occurrence: US)
  Receive Date: 20130418
  Receipt Date: 20130418
  Transmission Date: 20140414
  Serious: No
  Sender: FDA-Public Use
  Company Number: US-009507513-1304USA007214

PATIENT
  Sex: Female

DRUGS (1)
  1. NUVARING [Suspect]
     Dosage: (1 RING/3 WEEKS)
     Route: 067
     Dates: start: 2009

REACTIONS (3)
  - Poor quality drug administered [Unknown]
  - Product shape issue [Unknown]
  - No adverse event [Unknown]
